FAERS Safety Report 4498625-0 (Version None)
Quarter: 2004Q4

REPORT INFORMATION
  Report Type: 
  Country: None (occurrence: None)
  Receive Date: 20041108
  Receipt Date: 20041026
  Transmission Date: 20050328
  Serious: Yes (Death)
  Sender: FDA-Public Use
  Company Number: R301118-PAP-USA

PATIENT
  Age: 61 Year
  Sex: Male

DRUGS (4)
  1. ACIPHEX [Suspect]
     Dosage: ORAL
     Route: 048
  2. DELAUTIN (HYDROXYPROGESTERONE CAPROATE) [Concomitant]
  3. NEXIUM [Concomitant]
  4. HCTZ (HYDROXYCHLOROTHIAZIDE) [Concomitant]

REACTIONS (1)
  - COMPLETED SUICIDE [None]
